FAERS Safety Report 6298146-9 (Version None)
Quarter: 2009Q3

REPORT INFORMATION
  Report Type: 
  Country: None (occurrence: None)
  Receive Date: 20090805
  Receipt Date: 20090723
  Transmission Date: 20100115
  Serious: Yes (Other)
  Sender: FDA-Public Use
  Company Number: US-MERCK-0611USA03969

PATIENT
  Age: 35 Year
  Sex: Male

DRUGS (3)
  1. FOSAMAX [Suspect]
     Indication: OSTEOPOROSIS
     Route: 048
     Dates: start: 19960101, end: 20020101
  2. CALCIUM (UNSPECIFIED) [Concomitant]
     Route: 065
  3. VITAMIN D (UNSPECIFIED) [Concomitant]
     Route: 065

REACTIONS (5)
  - FEMUR FRACTURE [None]
  - IMPAIRED HEALING [None]
  - INJURY [None]
  - LOW TURNOVER OSTEOPATHY [None]
  - SPINAL COMPRESSION FRACTURE [None]
